FAERS Safety Report 9692625 (Version 2)
Quarter: 2013Q4

REPORT INFORMATION
  Report Type: Other
  Country: CA (occurrence: CA)
  Receive Date: 20131118
  Receipt Date: 20131127
  Transmission Date: 20140711
  Serious: No
  Sender: FDA-Public Use
  Company Number: PHHY2013CA129403

PATIENT
  Sex: Male

DRUGS (12)
  1. TOBI [Suspect]
     Dosage: UNK
  2. PULMOZYME [Concomitant]
     Dosage: UNK
  3. AVAMYS [Concomitant]
     Dosage: UNK
  4. ALVESCO [Concomitant]
     Dosage: UNK
  5. PMS-SALBUTAMOL [Concomitant]
     Dosage: UNK
  6. OXEZE TURBUHALER [Concomitant]
     Dosage: UNK
  7. D FORTE [Concomitant]
     Dosage: UNK
  8. BOOST [Concomitant]
     Dosage: UNK
  9. D-TABS [Concomitant]
     Dosage: UNK
  10. SODIUM CHLORIDE [Concomitant]
     Dosage: UNK
  11. COLISTIMETHATE [Concomitant]
     Dosage: UNK
  12. CREON [Concomitant]
     Dosage: UNK

REACTIONS (1)
  - No adverse event [Unknown]
